FAERS Safety Report 4286331-7 (Version None)
Quarter: 2004Q1

REPORT INFORMATION
  Report Type: 
  Country: None (occurrence: None)
  Receive Date: 20040121
  Receipt Date: 20030710
  Transmission Date: 20041129
  Serious: Yes (Hospitalization)
  Sender: FDA-Public Use
  Company Number: A03200301539

PATIENT
  Age: 83 Year
  Sex: Male
  Weight: 90.7194 kg

DRUGS (5)
  1. PLAVIX [Suspect]
     Indication: ARTERIAL OCCLUSIVE DISEASE
     Dosage: 75 MG QD - ORAL
     Route: 048
     Dates: start: 20030501, end: 20030501
  2. ASPIRIN [Suspect]
     Indication: ARTERIAL OCCLUSIVE DISEASE
     Dosage: 325 MG QD - ORAL
     Route: 048
     Dates: start: 20030501, end: 20030501
  3. PHENYTOIN SODIUM [Concomitant]
  4. ISOSORBIDE MONONITRATE [Concomitant]
  5. LEVOTHYTOXINE SODIUM [Concomitant]

REACTIONS (3)
  - EYE HAEMORRHAGE [None]
  - HAEMOGLOBIN DECREASED [None]
  - HAEMORRHAGE [None]
